FAERS Safety Report 21700894 (Version 1)
Quarter: 2022Q4

REPORT INFORMATION
  Report Type: Spontaneous
  Country: BR (occurrence: BR)
  Receive Date: 20221208
  Receipt Date: 20221208
  Transmission Date: 20230113
  Serious: Yes (Life-Threatening, Hospitalization, Other)
  Sender: FDA-Public Use
  Company Number: BR-PFIZER INC-PV202200114458

PATIENT
  Age: 35 Year
  Sex: Male

DRUGS (8)
  1. MEROPENEM [Suspect]
     Active Substance: MEROPENEM
     Indication: Candida infection
     Dosage: UNK
  2. VANCOMYCIN [Suspect]
     Active Substance: VANCOMYCIN
     Indication: Candida infection
     Dosage: UNK
  3. ITRACONAZOLE [Concomitant]
     Active Substance: ITRACONAZOLE
     Indication: Candida infection
     Dosage: 400 MG, DAILY
  4. AMPHOTERICIN B [Concomitant]
     Active Substance: AMPHOTERICIN B
     Indication: Candida infection
  5. ACYCLOVIR [Concomitant]
     Active Substance: ACYCLOVIR
     Dosage: 750 MG, DAILY
  6. TENOFOVIR [Concomitant]
     Active Substance: TENOFOVIR
     Dosage: UNK (MODIFIED)
  7. LAMIVUDINE [Concomitant]
     Active Substance: LAMIVUDINE
     Dosage: UNK (MODIFIED)
  8. DOLUTEGRAVIR [Concomitant]
     Active Substance: DOLUTEGRAVIR
     Dosage: UNK (MODIFIED)

REACTIONS (1)
  - Pancytopenia [Recovering/Resolving]
